FAERS Safety Report 5079508-4 (Version None)
Quarter: 2006Q3

REPORT INFORMATION
  Report Type: 
  Country: None (occurrence: None)
  Receive Date: 20060814
  Receipt Date: 20051021
  Transmission Date: 20061208
  Serious: No
  Sender: FDA-Public Use
  Company Number: US-BRISTOL-MYERS SQUIBB COMPANY-13153853

PATIENT
  Age: 41 Year
  Sex: Male
  Weight: 75 kg

DRUGS (1)
  1. GLYBURIDE + METFORMIN HCL TABS [Suspect]
     Indication: DIABETES MELLITUS
     Dosage: DOSAGE FORM = GLYBURIDE 5MG/METFORMIN 500MG - 2 TWICE PER DAY
     Route: 048
     Dates: start: 20050601

REACTIONS (1)
  - PAIN IN EXTREMITY [None]
